FAERS Safety Report 11185138 (Version 1)
Quarter: 2015Q2

REPORT INFORMATION
  Report Type: Spontaneous
  Country: US (occurrence: US)
  Receive Date: 20150612
  Receipt Date: 20150612
  Transmission Date: 20150821
  Serious: No
  Sender: FDA-Public Use
  Company Number: US-BAYER-2015-329120

PATIENT
  Age: 67 Year
  Sex: Female
  Weight: 56.69 kg

DRUGS (1)
  1. CLARITIN [Suspect]
     Active Substance: LORATADINE
     Indication: PHARYNGITIS STREPTOCOCCAL
     Dosage: 1 DF, QD
     Route: 048
     Dates: start: 20150608, end: 20150609

REACTIONS (2)
  - Off label use [None]
  - Insomnia [Recovered/Resolved]

NARRATIVE: CASE EVENT DATE: 20150608
